FAERS Safety Report 7009603-1 (Version None)
Quarter: 2010Q3

REPORT INFORMATION
  Report Type: 
  Country: None (occurrence: None)
  Receive Date: 20100923
  Receipt Date: 20100912
  Transmission Date: 20110219
  Serious: Yes (Other)
  Sender: FDA-Public Use
  Company Number: US-PFIZER INC-2010115638

PATIENT
  Sex: Female
  Weight: 72.109 kg

DRUGS (9)
  1. LYRICA [Suspect]
     Indication: POLYNEUROPATHY
     Dosage: 50 MG, 1X/DAY
     Route: 048
     Dates: start: 20100701
  2. PREMARIN [Concomitant]
     Indication: OESTROGEN REPLACEMENT THERAPY
     Dosage: 0.625 MG, UNK
  3. ATENOLOL [Concomitant]
     Indication: HYPERTENSION
     Dosage: UNK
  4. NEXIUM [Concomitant]
     Indication: GASTROOESOPHAGEAL REFLUX DISEASE
     Dosage: UNK
  5. KLONOPIN [Concomitant]
     Indication: RESTLESS LEGS SYNDROME
     Dosage: UNK
  6. ACETYLSALICYLIC ACID [Concomitant]
     Dosage: 81 MG, UNK
  7. ZOCOR [Concomitant]
     Indication: BLOOD CHOLESTEROL INCREASED
     Dosage: UNK
  8. VITAMIN B-12 [Concomitant]
     Indication: VITAMIN B12 DEFICIENCY
     Dosage: UNK
  9. VITAMIN B-12 [Concomitant]
     Dosage: UNK

REACTIONS (16)
  - ABNORMAL DREAMS [None]
  - ASTHENIA [None]
  - ASTHENOPIA [None]
  - CHOKING [None]
  - DIZZINESS [None]
  - DRY MOUTH [None]
  - DYSPHAGIA [None]
  - FATIGUE [None]
  - GAIT DISTURBANCE [None]
  - MALAISE [None]
  - MIDDLE INSOMNIA [None]
  - OEDEMA PERIPHERAL [None]
  - SOMNOLENCE [None]
  - THINKING ABNORMAL [None]
  - VISION BLURRED [None]
  - WEIGHT INCREASED [None]
